FAERS Safety Report 20597491 (Version 1)
Quarter: 2022Q1

REPORT INFORMATION
  Report Type: Spontaneous
  Country: US (occurrence: US)
  Receive Date: 20220315
  Receipt Date: 20220315
  Transmission Date: 20220423
  Serious: No
  Sender: FDA-Public Use
  Company Number: US-BAYER-2022A035125

PATIENT
  Age: 81 Year
  Sex: Male

DRUGS (1)
  1. MIRALAX [Suspect]
     Active Substance: POLYETHYLENE GLYCOL 3350
     Dosage: 2 CAPS A DAY
     Route: 048

REACTIONS (4)
  - Faeces discoloured [None]
  - Abdominal pain upper [Recovered/Resolved]
  - Drug ineffective [Unknown]
  - Product use issue [Unknown]
